FAERS Safety Report 9887552 (Version 1)
Quarter: 2014Q1

REPORT INFORMATION
  Report Type: Spontaneous
  Country: FR (occurrence: FR)
  Receive Date: 20140211
  Receipt Date: 20140211
  Transmission Date: 20141002
  Serious: Yes (Other)
  Sender: FDA-Public Use
  Company Number: FR-ASTRAZENECA-2014SE07622

PATIENT
  Age: 2025 Week
  Sex: Female

DRUGS (5)
  1. XEROQUEL [Suspect]
     Route: 048
     Dates: start: 20130430
  2. LOXAPAC [Suspect]
     Route: 048
     Dates: start: 20130530
  3. VALIUM [Concomitant]
     Route: 048
     Dates: start: 20130606
  4. PLAQUENIL [Concomitant]
     Route: 048
  5. IMOVANE [Concomitant]
     Route: 048

REACTIONS (2)
  - Hypokalaemia [Recovered/Resolved]
  - Electrocardiogram QT prolonged [Recovered/Resolved]
